FAERS Safety Report 9320266 (Version 3)
Quarter: 2014Q3

REPORT INFORMATION
  Report Type: Report from Study
  Country: US (occurrence: US)
  Receive Date: 20130530
  Receipt Date: 20140702
  Transmission Date: 20150326
  Serious: Yes (Other)
  Sender: FDA-Public Use
  Company Number: US-ALEXION-A201301200

PATIENT

DRUGS (3)
  1. SOLIRIS [Suspect]
     Active Substance: ECULIZUMAB
     Dosage: UNK
     Route: 042
  2. SOLIRIS [Suspect]
     Active Substance: ECULIZUMAB
     Indication: HAEMOLYTIC URAEMIC SYNDROME
     Dosage: 900 MG, Q2W
     Route: 042
     Dates: start: 20130111
  3. SOLIRIS [Suspect]
     Active Substance: ECULIZUMAB
     Dosage: UNK
     Route: 042

REACTIONS (11)
  - Renal failure [Unknown]
  - BK virus infection [Unknown]
  - Plasmapheresis [Unknown]
  - Drug ineffective [Unknown]
  - Fluid overload [Unknown]
  - Headache [Unknown]
  - Renal vascular thrombosis [Unknown]
  - Haemodialysis [Unknown]
  - Blood creatinine increased [Unknown]
  - Hypertension [Unknown]
  - Dialysis [Unknown]
